FAERS Safety Report 18938401 (Version 1)
Quarter: 2021Q1

REPORT INFORMATION
  Report Type: Spontaneous
  Country: AU (occurrence: AU)
  Receive Date: 20210225
  Receipt Date: 20210225
  Transmission Date: 20210420
  Serious: Yes (Other)
  Sender: FDA-Public Use
  Company Number: AU-ALKEM LABORATORIES LIMITED-AU-ALKEM-2020-06193

PATIENT
  Age: 51 Year
  Sex: Male

DRUGS (1)
  1. FINASTERIDE. [Suspect]
     Active Substance: FINASTERIDE
     Indication: PRODUCT USED FOR UNKNOWN INDICATION
     Dosage: UNK
     Route: 065

REACTIONS (9)
  - Affect lability [Unknown]
  - Withdrawal syndrome [Unknown]
  - Confusional state [Unknown]
  - Fatigue [Unknown]
  - Paraesthesia [Unknown]
  - Penile size reduced [Unknown]
  - Erectile dysfunction [Unknown]
  - Oedema peripheral [Unknown]
  - Panic attack [Unknown]
